FAERS Safety Report 25904989 (Version 2)
Quarter: 2025Q4

REPORT INFORMATION
  Report Type: Spontaneous
  Country: IN (occurrence: IN)
  Receive Date: 20251010
  Receipt Date: 20251024
  Transmission Date: 20260117
  Serious: Yes (Hospitalization)
  Sender: TAKEDA
  Company Number: IN-TAKEDA-2025TUS088225

PATIENT
  Age: 12 Year
  Sex: Male

DRUGS (1)
  1. ELAPRASE [Suspect]
     Active Substance: IDURSULFASE
     Indication: Mucopolysaccharidosis II
     Dosage: UNK

REACTIONS (8)
  - Respiratory disorder [Not Recovered/Not Resolved]
  - Mucopolysaccharidosis II [Unknown]
  - Dyspnoea [Unknown]
  - Pyrexia [Unknown]
  - Product storage error [Unknown]
  - Drug ineffective [Unknown]
  - Fall [Unknown]
  - Product distribution issue [Unknown]
